FAERS Safety Report 6347554-6 (Version None)
Quarter: 2009Q3

REPORT INFORMATION
  Report Type: 
  Country: None (occurrence: None)
  Receive Date: 20090909
  Receipt Date: 20090909
  Transmission Date: 20100115
  Serious: Yes (Hospitalization)
  Sender: FDA-Public Use
  Company Number: None

PATIENT
  Age: 50 Year
  Sex: Female
  Weight: 81.6475 kg

DRUGS (1)
  1. KADIAN [Suspect]
     Indication: PAIN
     Dosage: 30MG TWICE DAILY PO
     Route: 048
     Dates: start: 19900101, end: 20090908

REACTIONS (2)
  - PRODUCT QUALITY ISSUE [None]
  - RESPIRATORY DEPRESSION [None]
